FAERS Safety Report 4854535-8 (Version None)
Quarter: 2005Q4

REPORT INFORMATION
  Report Type: 
  Country: None (occurrence: None)
  Receive Date: 20051215
  Receipt Date: 20051130
  Transmission Date: 20060501
  Serious: Yes (Other)
  Sender: FDA-Public Use
  Company Number: FR-ROCHE-427392

PATIENT

DRUGS (2)
  1. PEGASYS [Suspect]
     Route: 065
  2. REBETOL [Suspect]
     Route: 065

REACTIONS (7)
  - ANTI-PLATELET ANTIBODY POSITIVE [None]
  - CEREBRAL HAEMORRHAGE [None]
  - EVAN'S SYNDROME [None]
  - GASTRIC ULCER HAEMORRHAGE [None]
  - PANCYTOPENIA [None]
  - RETINAL HAEMORRHAGE [None]
  - VITREOUS HAEMORRHAGE [None]
